FAERS Safety Report 9523566 (Version 2)
Quarter: 2013Q3

REPORT INFORMATION
  Report Type: Spontaneous
  Country: FR (occurrence: FR)
  Receive Date: 20130913
  Receipt Date: 20130926
  Transmission Date: 20140515
  Serious: Yes (Hospitalization)
  Sender: FDA-Public Use
  Company Number: FR-TEVA-432421USA

PATIENT
  Age: 83 Year
  Sex: Female

DRUGS (10)
  1. LEVACT [Suspect]
     Indication: B-CELL LYMPHOMA
     Dosage: REGIMEN #1
     Route: 041
     Dates: start: 20130703
  2. LEVACT [Suspect]
     Indication: NON-HODGKIN^S LYMPHOMA
     Dosage: REGIMEN #2
     Route: 041
     Dates: start: 20130731, end: 20130801
  3. MABTHERA [Suspect]
     Indication: B-CELL LYMPHOMA
     Dosage: REGIMEN # 1
     Route: 042
     Dates: start: 20130703
  4. MABTHERA [Suspect]
     Indication: NON-HODGKIN^S LYMPHOMA
     Dosage: REGIMEN # 2
     Route: 042
     Dates: start: 20130731, end: 20130731
  5. METHYLPREDNISOLONE [Suspect]
     Indication: B-CELL LYMPHOMA
     Dosage: UNKNOWN/D
     Dates: start: 201307
  6. METHYLPREDNISOLONE [Suspect]
     Indication: NON-HODGKIN^S LYMPHOMA
  7. TAGAMET [Concomitant]
  8. ATARAX [Concomitant]
  9. LASILIX [Concomitant]
     Dates: start: 20130801
  10. AERIUS [Concomitant]
     Dates: start: 20130802

REACTIONS (2)
  - Pancytopenia [Recovering/Resolving]
  - Febrile neutropenia [Recovering/Resolving]
